FAERS Safety Report 6083842-9 (Version None)
Quarter: 2009Q1

REPORT INFORMATION
  Report Type: 
  Country: None (occurrence: None)
  Receive Date: 20090204
  Receipt Date: 20071005
  Transmission Date: 20090719
  Serious: No
  Sender: FDA-Public Use
  Company Number: 268699

PATIENT
  Age: 81 Year
  Sex: Female

DRUGS (2)
  1. NOVOLOG [Suspect]
     Indication: INSULIN-REQUIRING TYPE 2 DIABETES MELLITUS
     Dosage: 5 U, TID, SUBCUTANEOUS
     Route: 058
     Dates: start: 20070901
  2. FLU VAX (INFLUENZA VACCINE) [Concomitant]

REACTIONS (4)
  - ABDOMINAL PAIN UPPER [None]
  - CONSTIPATION [None]
  - DIARRHOEA [None]
  - FATIGUE [None]
